FAERS Safety Report 4367338-8 (Version None)
Quarter: 2004Q2

REPORT INFORMATION
  Report Type: 
  Country: None (occurrence: None)
  Receive Date: 20040528
  Receipt Date: 20040528
  Transmission Date: 20050107
  Serious: Yes (Hospitalization)
  Sender: FDA-Public Use
  Company Number: None

PATIENT
  Age: 73 Year
  Sex: Female
  Weight: 72.1219 kg

DRUGS (16)
  1. 13-CIS-RETINOIC ACID [Suspect]
     Indication: METASTATIC NEOPLASM
     Dosage: 70 MG PO (D1-4)
     Route: 048
     Dates: start: 20040503, end: 20040506
  2. 13-CIS-RETINOIC ACID [Suspect]
     Indication: SQUAMOUS CELL CARCINOMA
     Dosage: 70 MG PO (D1-4)
     Route: 048
     Dates: start: 20040503, end: 20040506
  3. ALPH INTEREON [Suspect]
     Indication: METASTATIC NEOPLASM
     Dosage: 11 MU SC (D1-4)
     Route: 058
     Dates: start: 20040503, end: 20040506
  4. ALPH INTEREON [Suspect]
     Indication: SQUAMOUS CELL CARCINOMA
     Dosage: 11 MU SC (D1-4)
     Route: 058
     Dates: start: 20040503, end: 20040506
  5. TAXOTERE [Suspect]
     Indication: METASTATIC NEOPLASM
     Dosage: 74 MG IV (D2)
     Route: 042
     Dates: start: 20040504
  6. TAXOTERE [Suspect]
     Indication: SQUAMOUS CELL CARCINOMA
     Dosage: 74 MG IV (D2)
     Route: 042
     Dates: start: 20040504
  7. ESTRAMUSTINE [Suspect]
     Indication: METASTATIC NEOPLASM
     Dosage: 840 MG PO TID
     Route: 048
     Dates: start: 20040503, end: 20040507
  8. ESTRAMUSTINE [Suspect]
     Indication: SQUAMOUS CELL CARCINOMA
     Dosage: 840 MG PO TID
     Route: 048
     Dates: start: 20040503, end: 20040507
  9. ESCITALOPRAM [Concomitant]
  10. ZYRTEC [Concomitant]
  11. PRILOSEC [Concomitant]
  12. VIAGRA [Concomitant]
  13. SYNTHROID [Concomitant]
  14. SAW PALMETTO [Concomitant]
  15. MULTI-VITAMINS [Concomitant]
  16. VITAMIN B COMPLEX CAP [Concomitant]

REACTIONS (2)
  - ARTERIAL HAEMORRHAGE [None]
  - FATIGUE [None]
